FAERS Safety Report 7827329-9 (Version None)
Quarter: 2011Q4

REPORT INFORMATION
  Report Type: 
  Country: None (occurrence: None)
  Receive Date: 20111020
  Receipt Date: 20111017
  Transmission Date: 20120403
  Serious: Yes (Other)
  Sender: FDA-Public Use
  Company Number: US-PFIZER INC-2011248649

PATIENT
  Age: 95 Year
  Sex: Female
  Weight: 56.689 kg

DRUGS (5)
  1. PREDNISONE [Concomitant]
     Indication: MYALGIA
     Dosage: 10 MG, 1X/DAY, EVERY MORNING
  2. OXYCODONE [Concomitant]
     Indication: MYALGIA
     Dosage: EVERY MORNING
  3. BENICAR [Concomitant]
     Indication: HYPERTENSION
     Dosage: 20 MG, 2X/DAY
  4. AMLODIPINE BESYLATE [Suspect]
     Dosage: 10 MG, UNK
     Dates: start: 20110101
  5. AMLODIPINE BESYLATE [Suspect]
     Indication: HYPERTENSION
     Dosage: UNK
     Dates: start: 20100501

REACTIONS (7)
  - HYPERSOMNIA [None]
  - OEDEMA PERIPHERAL [None]
  - POLYMYALGIA RHEUMATICA [None]
  - DRUG INEFFECTIVE [None]
  - PARAESTHESIA [None]
  - PYREXIA [None]
  - POLLAKIURIA [None]
